FAERS Safety Report 5756810-1 (Version None)
Quarter: 2008Q2

REPORT INFORMATION
  Report Type: 
  Country: None (occurrence: None)
  Receive Date: 20080528
  Receipt Date: 20080513
  Transmission Date: 20081010
  Serious: Yes (Hospitalization, Other)
  Sender: FDA-Public Use
  Company Number: 430001E07USA

PATIENT
  Age: 61 Year
  Sex: Male
  Weight: 91.3 kg

DRUGS (11)
  1. NOVANTRONE [Suspect]
     Dosage: 25 MG, 3 CYCLE
     Dates: start: 20001109, end: 20001220
  2. BICALUTAMIDE [Suspect]
     Dates: start: 20001109, end: 20021108
  3. GOSERELIN (GOSERELIN) [Suspect]
     Dates: start: 20001109, end: 20021108
  4. PREDNISONE [Suspect]
     Dates: start: 20001109, end: 20011221
  5. SYNTHROID [Concomitant]
  6. ATENOLOL [Concomitant]
  7. EFFEXOR [Concomitant]
  8. ACYCLOVIR (ACICLOVIR /00587301) [Concomitant]
  9. AZTREONAM (AZITREONAM) [Concomitant]
  10. VANCOMYCIN [Concomitant]
  11. FLAGYL [Concomitant]

REACTIONS (11)
  - ACUTE MYELOID LEUKAEMIA [None]
  - ANAEMIA [None]
  - BONE MARROW FAILURE [None]
  - CARDIAC DISORDER [None]
  - FEBRILE NEUTROPENIA [None]
  - HEPATOTOXICITY [None]
  - PNEUMONITIS [None]
  - PULMONARY OEDEMA [None]
  - RESPIRATORY DISTRESS [None]
  - THROMBOCYTOPENIA [None]
  - TRANSFUSION-RELATED ACUTE LUNG INJURY [None]
